FAERS Safety Report 5843325-5 (Version None)
Quarter: 2008Q3

REPORT INFORMATION
  Report Type: 
  Country: None (occurrence: None)
  Receive Date: 20080812
  Receipt Date: 20080812
  Transmission Date: 20090109
  Serious: Yes (Other)
  Sender: FDA-Public Use
  Company Number: None

PATIENT
  Sex: Male

DRUGS (6)
  1. REVLIMID [Suspect]
     Indication: MULTIPLE MYELOMA
     Dosage: 20MG DAILY FOR 21D/28D PO, 6 MONTHS
     Route: 048
  2. PNEUMOVAX 23 [Concomitant]
  3. ADVAIR DISKUS 100/50 [Concomitant]
  4. ATROVENT [Concomitant]
  5. AZITHROMYCIN [Concomitant]
  6. ALBUTEROL [Concomitant]

REACTIONS (3)
  - ERYTHEMA [None]
  - RASH MACULO-PAPULAR [None]
  - RASH PRURITIC [None]
